FAERS Safety Report 4960427-6 (Version None)
Quarter: 2006Q2

REPORT INFORMATION
  Report Type: 
  Country: None (occurrence: None)
  Receive Date: 20060403
  Receipt Date: 20060327
  Transmission Date: 20061013
  Serious: Yes (Life-Threatening, Hospitalization)
  Sender: FDA-Public Use
  Company Number: PHHO2006DE05231

PATIENT
  Sex: Male
  Weight: 90 kg

DRUGS (11)
  1. NEORAL [Suspect]
     Indication: RENAL TRANSPLANT
     Dosage: UNK, UNK
     Route: 048
  2. ASPIRIN [Concomitant]
  3. CELLCEPT [Suspect]
     Indication: RENAL TRANSPLANT
     Dosage: 2 G / DAY
     Route: 048
  4. METHYLPREDNISOLONE [Concomitant]
     Indication: RENAL TRANSPLANT
     Dosage: 250 MG / DAY
     Route: 042
  5. TORSEMIDE [Concomitant]
  6. PRAVASTATIN [Concomitant]
  7. BELOC [Concomitant]
  8. DOXAZOSIN [Concomitant]
  9. AMLODIPINE [Concomitant]
  10. L-THYROXIN [Concomitant]
  11. ALLOPURINOL [Concomitant]

REACTIONS (4)
  - ACUTE CORONARY SYNDROME [None]
  - BLOOD GLUCOSE ABNORMAL [None]
  - HYPERTENSION [None]
  - TROPONIN I INCREASED [None]
